FAERS Safety Report 19276327 (Version 1)
Quarter: 2021Q2

REPORT INFORMATION
  Report Type: Report from Study
  Country: None (occurrence: AU)
  Receive Date: 20210520
  Receipt Date: 20210520
  Transmission Date: 20210717
  Serious: Yes (Hospitalization)
  Sender: FDA-Public Use
  Company Number: AU-ABBVIE-21K-008-3910157-00

PATIENT

DRUGS (2)
  1. DUODOPA [Suspect]
     Active Substance: CARBIDOPA\LEVODOPA
     Indication: PARKINSON^S DISEASE
     Dosage: CONTINUOUS RATE: 2.7 ML ?DOSE DECREASED
     Route: 050
     Dates: start: 20190506
  2. DUODOPA [Suspect]
     Active Substance: CARBIDOPA\LEVODOPA
     Dosage: CONTINUOUS RATE 2.5MLS/HR, EXTRA DOSE 0.7MLS/HR AND MORNING DOSE 7MLS/HR
     Route: 050
     Dates: start: 2021

REACTIONS (2)
  - Psychotic behaviour [Unknown]
  - Bipolar disorder [Unknown]
